FAERS Safety Report 9157506 (Version 2)
Quarter: 2013Q4

REPORT INFORMATION
  Report Type: Spontaneous
  Country: FR (occurrence: FR)
  Receive Date: 20130312
  Receipt Date: 20131009
  Transmission Date: 20140711
  Serious: Yes (Other)
  Sender: FDA-Public Use
  Company Number: PHHY2013FR023146

PATIENT
  Age: 25 Year
  Sex: Male

DRUGS (20)
  1. CERTICAN [Suspect]
     Indication: LUNG TRANSPLANT
     Dosage: 2 MG, QD
     Route: 048
  2. TRIATEC [Suspect]
     Dosage: 5 MG, BID
     Route: 048
     Dates: start: 20130219, end: 20130219
  3. ADVAGRAF [Concomitant]
     Dosage: 7 MG, QD
  4. ARAVA [Concomitant]
     Dosage: 60 MG, QD
  5. CREON [Concomitant]
     Dosage: 100000 IU, TID
  6. EUROBIOL [Concomitant]
     Dosage: 50000 IU, TID
  7. PARIET [Concomitant]
     Dosage: 20 MG, QD
  8. RENAGEL [Concomitant]
     Dosage: 800 MG, QD
  9. FEROGRAD [Concomitant]
     Dosage: UNK UKN, QD
  10. AZITHROMYCIN [Concomitant]
     Dosage: 250 MG, BID
  11. TAHOR [Concomitant]
     Dosage: 40 MG, QD
  12. KAYEXALATE [Concomitant]
     Dosage: 2 MEASURING SPOONS DAILY
  13. EFFEXOR [Concomitant]
     Dosage: 75 MG, QD
  14. TIORFAN [Concomitant]
     Dosage: 100 MG, TID
  15. SMECTA [Concomitant]
     Dosage: UNK UKN, TID
  16. EUPRESSYL [Concomitant]
     Dosage: 60 MG, TID
  17. MUCOMYST [Concomitant]
     Dosage: UNK UKN, BID
  18. ATARAX [Concomitant]
     Dosage: 25 MG, QD
  19. LANTUS [Concomitant]
     Dosage: 10 IU, QD
  20. NOVORAPID [Concomitant]
     Dosage: UNK UKN, UNK

REACTIONS (4)
  - Face oedema [Recovered/Resolved]
  - Tongue oedema [Recovered/Resolved]
  - Lip oedema [Recovered/Resolved]
  - Laryngeal discomfort [Recovered/Resolved]
